FAERS Safety Report 5543980-3 (Version None)
Quarter: 2007Q4

REPORT INFORMATION
  Report Type: 
  Country: None (occurrence: None)
  Receive Date: 20071210
  Receipt Date: 20070827
  Transmission Date: 20080405
  Serious: No
  Sender: FDA-Public Use
  Company Number: US-AMGEN-KDL182627

PATIENT
  Sex: Female

DRUGS (1)
  1. ENBREL [Suspect]
     Indication: PSORIATIC ARTHROPATHY
     Route: 058
     Dates: start: 20050801

REACTIONS (5)
  - ARTHRALGIA [None]
  - EXCORIATION [None]
  - INJECTION SITE BRUISING [None]
  - MENISCUS LESION [None]
  - SYNOVIAL CYST [None]
